FAERS Safety Report 17895851 (Version 3)
Quarter: 2020Q3

REPORT INFORMATION
  Report Type: Spontaneous
  Country: IN (occurrence: IN)
  Receive Date: 20200615
  Receipt Date: 20200730
  Transmission Date: 20201103
  Serious: Yes (Other)
  Sender: FDA-Public Use
  Company Number: IN-B.I. PHARMACEUTICALS,INC./RIDGEFIELD-2020-BI-028693

PATIENT
  Age: 66 Year
  Sex: Male
  Weight: 55 kg

DRUGS (1)
  1. PRADAXA [Suspect]
     Active Substance: DABIGATRAN ETEXILATE MESYLATE
     Indication: ATRIAL FIBRILLATION
     Route: 065

REACTIONS (5)
  - Gastrointestinal haemorrhage [Recovered/Resolved]
  - Ulcer haemorrhage [Recovered/Resolved]
  - Acute kidney injury [Unknown]
  - Melaena [Recovered/Resolved]
  - Renal function test abnormal [Unknown]
